FAERS Safety Report 10362844 (Version 2)
Quarter: 2014Q3

REPORT INFORMATION
  Report Type: Spontaneous
  Country: US (occurrence: US)
  Receive Date: 20140805
  Receipt Date: 20140902
  Transmission Date: 20150326
  Serious: No
  Sender: FDA-Public Use
  Company Number: US-ASTRAZENECA-2014SE54414

PATIENT
  Age: 87 Year
  Sex: Male
  Weight: 65.8 kg

DRUGS (5)
  1. BRILINTA [Suspect]
     Active Substance: TICAGRELOR
     Indication: ACUTE CORONARY SYNDROME
     Route: 048
     Dates: start: 20140709
  2. VALSARTAN. [Concomitant]
     Active Substance: VALSARTAN
     Indication: ILL-DEFINED DISORDER
     Dosage: 160
     Dates: start: 20140718
  3. POTASSIUM [Concomitant]
     Active Substance: POTASSIUM
     Indication: ILL-DEFINED DISORDER
     Dates: start: 20140709
  4. BRILINTA [Suspect]
     Active Substance: TICAGRELOR
     Indication: STENT PLACEMENT
     Route: 048
     Dates: start: 20140709
  5. TORSEMIDE. [Concomitant]
     Active Substance: TORSEMIDE
     Indication: ILL-DEFINED DISORDER
     Dosage: 20 MG. DAILY
     Dates: start: 20140709

REACTIONS (2)
  - Weight decreased [Not Recovered/Not Resolved]
  - Back pain [Unknown]

NARRATIVE: CASE EVENT DATE: 201407
